FAERS Safety Report 15253724 (Version 1)
Quarter: 2018Q3

REPORT INFORMATION
  Report Type: Report from Study
  Country: US (occurrence: US)
  Receive Date: 20180808
  Receipt Date: 20180808
  Transmission Date: 20181010
  Serious: Yes (Other)
  Sender: FDA-Public Use
  Company Number: US-AMGEN-USASL2018107674

PATIENT
  Sex: Female

DRUGS (1)
  1. ENBREL [Suspect]
     Active Substance: ETANERCEPT
     Indication: RHEUMATOID ARTHRITIS
     Dosage: 50 MG, QWK
     Route: 065

REACTIONS (8)
  - Blindness transient [Unknown]
  - Burning sensation [Unknown]
  - Eye pain [Unknown]
  - Pain in extremity [Unknown]
  - Arthralgia [Unknown]
  - Vision blurred [Unknown]
  - Back pain [Unknown]
  - Neuralgia [Unknown]
